FAERS Safety Report 6114097-4 (Version None)
Quarter: 2009Q1

REPORT INFORMATION
  Report Type: 
  Country: None (occurrence: None)
  Receive Date: 20090312
  Receipt Date: 20080610
  Transmission Date: 20090719
  Serious: No
  Sender: FDA-Public Use
  Company Number: US-ABBOTT-08P-163-0456507-00

PATIENT
  Sex: Male
  Weight: 84.898 kg

DRUGS (1)
  1. DEPAKOTE [Suspect]
     Indication: PARANOID PERSONALITY DISORDER
     Route: 048
     Dates: start: 19910101

REACTIONS (4)
  - GOUT [None]
  - MUSCLE DISORDER [None]
  - MUSCLE SPASMS [None]
  - SCHIZOPHRENIA [None]
